FAERS Safety Report 5036854-8 (Version None)
Quarter: 2006Q2

REPORT INFORMATION
  Report Type: 
  Country: None (occurrence: None)
  Receive Date: 20060601
  Receipt Date: 20060207
  Transmission Date: 20061013
  Serious: Yes (Other)
  Sender: FDA-Public Use
  Company Number: US_0511123862

PATIENT
  Age: 84 Year
  Sex: Female
  Weight: 65.3 kg

DRUGS (10)
  1. CYMBALTA [Suspect]
     Indication: DEPRESSION
     Dosage: SEE IMAGE
     Dates: start: 20050616, end: 20050706
  2. CYMBALTA [Suspect]
     Indication: DEPRESSION
     Dosage: SEE IMAGE
     Dates: start: 20050707, end: 20051027
  3. EVISTA [Suspect]
     Dosage: 60 MG
  4. LIPITOR [Concomitant]
  5. TEVETEN [Concomitant]
  6. HYDROCHLOROTHIAZIDE [Concomitant]
  7. ASPIRIN [Concomitant]
  8. QUININE ^SAD^ (QUININE) [Concomitant]
  9. VITAMINS NOS (VITAMINS NOS) [Concomitant]
  10. ASCORBIC ACID [Concomitant]

REACTIONS (3)
  - BLOOD SODIUM DECREASED [None]
  - HYPERHIDROSIS [None]
  - HYPERSENSITIVITY [None]
